FAERS Safety Report 19408553 (Version 1)
Quarter: 2021Q2

REPORT INFORMATION
  Report Type: Spontaneous
  Country: DE (occurrence: DE)
  Receive Date: 20210612
  Receipt Date: 20210612
  Transmission Date: 20210717
  Serious: Yes (Hospitalization, Other)
  Sender: FDA-Public Use
  Company Number: DE-TEVA-2021-DE-1921152

PATIENT
  Age: 42 Year
  Sex: Male

DRUGS (3)
  1. LEVOMETHADONE [Concomitant]
     Active Substance: LEVOMETHADONE
     Indication: SLEEP DISORDER
     Dosage: UNIT DOSE 2 ML ,DAILY DOSE: 2 ML MILLILITRE(S) EVERY DAYS
     Route: 048
  2. PROTHIPENDYL [Suspect]
     Active Substance: PROTHIPENDYL
     Indication: SLEEP DISORDER
     Dosage: UNIT DOSE:160 MG,DAILY DOSE: 160 MG MILLGRAM(S) EVERY DAYS
     Route: 048
  3. FLUPENTIXOL [Suspect]
     Active Substance: FLUPENTIXOL
     Indication: DELUSION
     Dosage: UNIT DOSE :10 MG ,DAILY DOSE: 10 MG MILLGRAM(S) EVERY DAYS 2 SEPARATED DOSES
     Route: 048

REACTIONS (1)
  - Type 2 diabetes mellitus [Not Recovered/Not Resolved]

NARRATIVE: CASE EVENT DATE: 20210105
